FAERS Safety Report 8824589 (Version 1)
Quarter: 2012Q4

REPORT INFORMATION
  Report Type: 
  Country: FR (occurrence: FR)
  Receive Date: 20121004
  Receipt Date: 20121004
  Transmission Date: 20130627
  Serious: No
  Sender: FDA-Public Use
  Company Number: FR-009507513-1209FRA008275

PATIENT
  Sex: Female

DRUGS (1)
  1. SYCREST [Suspect]
     Indication: PRODUCT USED FOR UNKNOWN INDICATION
     Dosage: 5 mg, bid

REACTIONS (3)
  - Erythema [Unknown]
  - Hypoaesthesia oral [Unknown]
  - Oral discomfort [Unknown]
